FAERS Safety Report 9531295 (Version 2)
Quarter: 2014Q1

REPORT INFORMATION
  Report Type: Spontaneous
  Country: JP (occurrence: None)
  Receive Date: 20130916
  Receipt Date: 20140107
  Transmission Date: 20141002
  Serious: Yes (Hospitalization)
  Sender: FDA-Public Use
  Company Number: ABR_01104_2013

PATIENT
  Age: 60 Year
  Sex: Female
  Weight: 46 kg

DRUGS (3)
  1. GLIADEL [Suspect]
     Indication: MALIGNANT GLIOMA
     Dosage: INTRACEREBRAL
     Dates: start: 20130412, end: 20130412
  2. TEMODAL [Suspect]
     Indication: MALIGNANT GLIOMA
     Route: 048
     Dates: start: 20130430, end: 20130610
  3. RINDERON [Suspect]
     Indication: PRODUCT USED FOR UNKNOWN INDICATION
     Dosage: 6 MG 1X ORAL
     Route: 048
     Dates: end: 20130606

REACTIONS (13)
  - Convulsion [None]
  - Brain oedema [None]
  - Condition aggravated [None]
  - Intracranial pressure increased [None]
  - Headache [None]
  - Nausea [None]
  - Gait disturbance [None]
  - Hemiparesis [None]
  - Pneumocystis jirovecii pneumonia [None]
  - Lymphopenia [None]
  - Gait disturbance [None]
  - Discomfort [None]
  - Respiratory disorder [None]
